FAERS Safety Report 8256749-6 (Version None)
Quarter: 2012Q2

REPORT INFORMATION
  Report Type: 
  Country: None (occurrence: None)
  Receive Date: 20120403
  Receipt Date: 20120323
  Transmission Date: 20120825
  Serious: Yes (Death)
  Sender: FDA-Public Use
  Company Number: FR-PFIZER INC-2012075376

PATIENT
  Age: 61 Year
  Sex: Male

DRUGS (24)
  1. ATACAND [Suspect]
     Dosage: 8 MG, 1X/DAY
     Route: 048
     Dates: start: 20090102, end: 20090112
  2. ATACAND [Suspect]
     Dosage: 16 MG, 1X/DAY
     Route: 048
     Dates: start: 20090113
  3. LEVOTHYROXINE SODIUM [Concomitant]
     Dosage: UNK
     Dates: start: 20040101
  4. VASTAREL [Suspect]
     Dosage: 35 MG, 2X/DAY
     Route: 048
     Dates: start: 20110527
  5. ESIDRIX [Suspect]
     Dosage: 12.5 MG, 1X/DAY
     Route: 048
     Dates: start: 20090113
  6. LOXAPINE HCL [Suspect]
     Dosage: UP TO 6 TABLETS OF 100 MG DAILY, AND 1 TABLET OF 50 MG LP IF NEEDED
     Route: 048
     Dates: start: 20090101
  7. EDUCTYL [Concomitant]
     Dosage: 2 SUPPOSITORY DAILY
     Dates: start: 20090101
  8. NORMACOL [Concomitant]
     Dosage: 1 DF, ALTERNATE DAY
     Dates: start: 20090101
  9. X-PREP [Concomitant]
     Dosage: AS NEEDED
     Dates: start: 20090101
  10. ATARAX [Suspect]
     Dosage: 100 MG, 1X/DAY
     Route: 048
     Dates: start: 20101220, end: 20110729
  11. LOXAPINE HCL [Suspect]
     Dosage: 150 MG DAILY
     Route: 048
     Dates: start: 20010301
  12. TRIMEPRAZINE TARTRATE [Suspect]
     Dosage: 4% ORAL SOLUTION IN DROPS, 100 DROPS PER DAY
     Route: 048
     Dates: start: 20081220
  13. IMOVANE [Suspect]
     Dosage: 7.5 MG, 2X/DAY
     Route: 048
     Dates: start: 20041027
  14. LANSOYL [Concomitant]
     Dosage: 3 DF DAILY
     Dates: start: 20090101
  15. POLYETHYLENE GLYCOL [Concomitant]
     Dosage: 6 DF DAILY
     Dates: start: 20080101
  16. POLYETHYLENE GLYCOL [Concomitant]
     Dosage: UNK
     Dates: start: 20060101
  17. LEPTICUR [Concomitant]
     Dosage: UNK
     Dates: start: 20080101
  18. SULFARLEM [Concomitant]
     Dosage: UNK
  19. HALDOL [Suspect]
     Dosage: 2 MG/ML, ORAL SOLUTION IN DROPS, UNSPECIFIED DOSAGE
     Route: 048
     Dates: start: 20041027, end: 20090716
  20. CELESTAMINE TAB [Concomitant]
     Dosage: 3 DF DAILY
     Dates: start: 20100101
  21. AMLODIPINE BESYLATE [Suspect]
     Dosage: 5 MG, 1X/DAY
     Dates: start: 20081230
  22. RISPERDAL CONSTA [Suspect]
     Indication: SCHIZOPHRENIA, PARANOID TYPE
     Dosage: 50 MG/2 ML, ONE INJECTION EVERY FOURTEEN DAYS
     Dates: start: 20100708, end: 20110722
  23. SERC [Suspect]
     Dosage: 8 MG, 2X/DAY
     Route: 048
     Dates: start: 20110527
  24. MODECATE ^SANOFI WINTHROP^ [Concomitant]
     Dosage: UNK
     Dates: start: 20060101

REACTIONS (2)
  - CARDIAC ARREST [None]
  - ELECTROCARDIOGRAM QT PROLONGED [None]
